FAERS Safety Report 13010086 (Version 1)
Quarter: 2016Q4

REPORT INFORMATION
  Report Type: Spontaneous
  Country: US (occurrence: US)
  Receive Date: 20161208
  Receipt Date: 20161208
  Transmission Date: 20170207
  Serious: Yes (Other)
  Sender: FDA-Public Use
  Company Number: US-CELGENEUS-USA-2016104725

PATIENT
  Age: 71 Year
  Sex: Female
  Weight: 57.66 kg

DRUGS (2)
  1. REVLIMID [Suspect]
     Active Substance: LENALIDOMIDE
     Indication: MYELODYSPLASTIC SYNDROME
     Dosage: 25MG
     Route: 048
     Dates: start: 20160928
  2. REVLIMID [Suspect]
     Active Substance: LENALIDOMIDE
     Dosage: 5MG
     Route: 048
     Dates: start: 20161206

REACTIONS (5)
  - Rash [Unknown]
  - Platelet count decreased [Unknown]
  - Immune system disorder [Unknown]
  - Petechiae [Unknown]
  - Fatigue [Unknown]

NARRATIVE: CASE EVENT DATE: 2016
